FAERS Safety Report 16461717 (Version 1)
Quarter: 2019Q2

REPORT INFORMATION
  Report Type: Spontaneous
  Country: CH (occurrence: CH)
  Receive Date: 20190621
  Receipt Date: 20190621
  Transmission Date: 20190711
  Serious: Yes (Hospitalization, Other)
  Sender: FDA-Public Use
  Company Number: CH-GILEAD-2019-0414413

PATIENT
  Age: 45 Year
  Sex: Male

DRUGS (5)
  1. BENERVA [Concomitant]
     Active Substance: THIAMINE HYDROCHLORIDE
  2. VALIUM [Concomitant]
     Active Substance: DIAZEPAM
  3. MORPHINE [Concomitant]
     Active Substance: MORPHINE
     Route: 048
  4. HARVONI [Suspect]
     Active Substance: LEDIPASVIR\SOFOSBUVIR
     Indication: HEPATITIS C
     Dosage: UNK
     Route: 048
     Dates: start: 20180810, end: 20181101
  5. BECOZYME [VITAMIN B COMPLEX] [Concomitant]
     Dosage: 1 TABLETTE

REACTIONS (1)
  - Pulmonary embolism [Unknown]

NARRATIVE: CASE EVENT DATE: 20180910
